FAERS Safety Report 11058541 (Version 1)
Quarter: 2015Q2

REPORT INFORMATION
  Report Type: Report from Study
  Country: US (occurrence: None)
  Receive Date: 20150420
  Receipt Date: 20150420
  Transmission Date: 20150821
  Serious: No
  Sender: FDA-Public Use
  Company Number: AEGR001073

PATIENT
  Age: 59 Year
  Sex: Female
  Weight: 105.7 kg

DRUGS (11)
  1. JUXTAPID [Suspect]
     Active Substance: LOMITAPIDE MESYLATE
     Indication: TYPE IIA HYPERLIPIDAEMIA
     Route: 048
     Dates: start: 20141215
  2. FIORICET (BUTALBITAL, CAFFEINE, PARACETAMOL) [Concomitant]
  3. PROMETHAZINE [Concomitant]
     Active Substance: PROMETHAZINE\PROMETHAZINE HYDROCHLORIDE
  4. LOPERAMIDE (LOPERAMIDE OXIDE) [Concomitant]
  5. AMLODIPINE (AMLODIPIE BESILATE) [Concomitant]
  6. LORAZEPAM (LORAZEPAM) [Concomitant]
     Active Substance: LORAZEPAM
  7. LEXAPRO [Concomitant]
     Active Substance: ESCITALOPRAM OXALATE
  8. CRESTOR [Concomitant]
     Active Substance: ROSUVASTATIN CALCIUM
  9. ASPIRIN (ACETYLSALICYLIC ACID) [Concomitant]
     Active Substance: ASPIRIN
  10. OXCARBAZEPINE (OXCARBAZEPINE) [Concomitant]
     Active Substance: OXCARBAZEPINE
  11. MECLIZINE [Concomitant]
     Active Substance: MECLIZINE\MECLIZINE HYDROCHLORIDE

REACTIONS (6)
  - Nausea [None]
  - Weight decreased [None]
  - Malaise [None]
  - Fatigue [None]
  - Abdominal pain upper [None]
  - Diarrhoea [None]

NARRATIVE: CASE EVENT DATE: 20141215
